FAERS Safety Report 25096545 (Version 2)
Quarter: 2025Q1

REPORT INFORMATION
  Report Type: Spontaneous
  Country: GB (occurrence: GB)
  Receive Date: 20250319
  Receipt Date: 20250328
  Transmission Date: 20250409
  Serious: Yes (Death)
  Sender: MYLAN
  Company Number: GB-MYLANLABS-2025M1023934

PATIENT
  Age: 49 Year
  Sex: Male
  Weight: 119.2 kg

DRUGS (3)
  1. CLOZARIL [Suspect]
     Active Substance: CLOZAPINE
     Indication: Schizophrenia
     Dosage: BID (200MG MANE 300MG NOCTE)
     Dates: start: 20110728, end: 20250312
  2. ESCITALOPRAM [Concomitant]
     Active Substance: ESCITALOPRAM OXALATE
     Dosage: 20 MILLIGRAM, QD (20MG OD)
     Dates: start: 20200813, end: 20250312
  3. VALPROATE SODIUM [Concomitant]
     Active Substance: VALPROATE SODIUM
     Dosage: 1000 MILLIGRAM, BID (1000MG BD)
     Dates: start: 20200813, end: 20250312

REACTIONS (1)
  - Myocardial infarction [Fatal]

NARRATIVE: CASE EVENT DATE: 20250312
